FAERS Safety Report 5805288-8 (Version None)
Quarter: 2008Q3

REPORT INFORMATION
  Report Type: 
  Country: None (occurrence: None)
  Receive Date: 20080703
  Receipt Date: 20080623
  Transmission Date: 20090109
  Serious: Yes (Hospitalization)
  Sender: FDA-Public Use
  Company Number: 235927K07USA

PATIENT
  Age: 35 Year
  Sex: Female

DRUGS (1)
  1. REBIF [Suspect]
     Indication: MULTIPLE SCLEROSIS
     Dosage: 22 MCG, 3 IN 1 WEEKS, SUBCUTANEOUS
     Route: 058
     Dates: start: 20070620

REACTIONS (5)
  - ABDOMINAL PAIN [None]
  - CONFUSIONAL STATE [None]
  - DIARRHOEA [None]
  - GAIT DISTURBANCE [None]
  - X-RAY GASTROINTESTINAL TRACT ABNORMAL [None]
